FAERS Safety Report 24175021 (Version 1)
Quarter: 2024Q3

REPORT INFORMATION
  Report Type: Spontaneous
  Country: CN (occurrence: CN)
  Receive Date: 20240805
  Receipt Date: 20240805
  Transmission Date: 20241017
  Serious: Yes (Life-Threatening)
  Sender: EISAI
  Company Number: CN-Eisai-EC-2024-171416

PATIENT
  Age: 76 Year
  Sex: Male

DRUGS (2)
  1. LENVATINIB [Suspect]
     Active Substance: LENVATINIB
     Indication: Targeted cancer therapy
     Route: 048
     Dates: start: 20240625, end: 20240709
  2. KEYTRUDA [Suspect]
     Active Substance: PEMBROLIZUMAB
     Indication: Neoplasm
     Route: 042
     Dates: start: 20240625, end: 20240625

REACTIONS (1)
  - Cardiotoxicity [Unknown]

NARRATIVE: CASE EVENT DATE: 20240709
